FAERS Safety Report 18177779 (Version 1)
Quarter: 2020Q3

REPORT INFORMATION
  Report Type: Spontaneous
  Country: US (occurrence: US)
  Receive Date: 20200820
  Receipt Date: 20200820
  Transmission Date: 20201103
  Serious: Yes (Other)
  Sender: FDA-Public Use
  Company Number: US-OMEROS CORPORATION-2020OME00004

PATIENT
  Age: 80 Year
  Sex: Male
  Weight: 72.56 kg

DRUGS (21)
  1. OMIDRIA [Suspect]
     Active Substance: KETOROLAC\PHENYLEPHRINE
     Indication: CATARACT OPERATION
     Dosage: 4 ML PER 500 CC BSS SOLUTION
     Route: 047
     Dates: start: 20200629, end: 20200629
  2. OMIDRIA [Suspect]
     Active Substance: KETOROLAC\PHENYLEPHRINE
     Indication: INTRAOCULAR LENS IMPLANT
  3. VERSED [Concomitant]
     Active Substance: MIDAZOLAM HYDROCHLORIDE
     Dosage: 2 MG
     Route: 042
     Dates: start: 2020, end: 2020
  4. BSS SOLUTION (ALCON) [Concomitant]
     Dosage: 4 ML OMIDRIA PER 500 CC BSS SOLUTION
     Dates: start: 20200629, end: 20200629
  5. ANIKAVISC [Concomitant]
     Dosage: UNK
     Dates: start: 20200629, end: 20200629
  6. PROPARACAINE [Concomitant]
     Active Substance: PROPARACAINE
     Dosage: UNK
     Dates: start: 20200629, end: 20200629
  7. OMIDRIA [Suspect]
     Active Substance: KETOROLAC\PHENYLEPHRINE
     Indication: VISION CORRECTION OPERATION
  8. BETADINE [Concomitant]
     Active Substance: POVIDONE-IODINE
     Dosage: UNK
     Dates: start: 20200629, end: 20200629
  9. OFLOXACIN. [Concomitant]
     Active Substance: OFLOXACIN
     Dosage: X 3 PRIOR TO PROCEDURE
     Dates: start: 2020, end: 2020
  10. AVELOX [Concomitant]
     Active Substance: MOXIFLOXACIN HYDROCHLORIDE
     Dosage: 0.1 ML
     Dates: start: 20200629, end: 20200629
  11. TROPICAMIDE. [Concomitant]
     Active Substance: TROPICAMIDE
     Dosage: X 3 PRIOR TO PROCEDURE
     Dates: start: 2020, end: 2020
  12. ENBREL [Concomitant]
     Active Substance: ETANERCEPT
  13. AMLODIPINE [Concomitant]
     Active Substance: AMLODIPINE BESYLATE
  14. PRED FORTE [Concomitant]
     Active Substance: PREDNISOLONE ACETATE
     Dosage: UNK
     Dates: start: 20200629, end: 20200629
  15. VISCOAT [Concomitant]
     Dosage: UNK
     Dates: start: 20200629, end: 20200629
  16. PROPARACAINE [Concomitant]
     Active Substance: PROPARACAINE
     Dosage: X 3 PRIOR TO PROCEDURE
     Dates: start: 2020, end: 2020
  17. OMEPRAZOLE. [Concomitant]
     Active Substance: OMEPRAZOLE
  18. LESS DROPS [Concomitant]
  19. BENAZEPRIL [Concomitant]
     Active Substance: BENAZEPRIL HYDROCHLORIDE
  20. OFLOXACIN. [Concomitant]
     Active Substance: OFLOXACIN
     Dosage: UNK
     Dates: start: 20200629, end: 20200629
  21. PHENYLEPHRINE [Concomitant]
     Active Substance: PHENYLEPHRINE HYDROCHLORIDE
     Dosage: X 3 PRIOR TO PROCEDURE
     Dates: start: 2020, end: 2020

REACTIONS (1)
  - Vitritis [Recovered/Resolved]

NARRATIVE: CASE EVENT DATE: 20200723
